FAERS Safety Report 25547536 (Version 2)
Quarter: 2025Q3

REPORT INFORMATION
  Report Type: Spontaneous
  Country: CN (occurrence: CN)
  Receive Date: 20250714
  Receipt Date: 20250715
  Transmission Date: 20251020
  Serious: Yes (Other)
  Sender: SANOFI AVENTIS
  Company Number: CN-SA-2025SA190760

PATIENT
  Age: 82 Year
  Sex: Female
  Weight: 85 kg

DRUGS (2)
  1. INSULIN GLARGINE\LIXISENATIDE [Suspect]
     Active Substance: INSULIN GLARGINE\LIXISENATIDE
     Indication: Diabetes mellitus
     Dosage: 10 IU, QD
     Route: 058
     Dates: start: 20230211, end: 20250620
  2. METFORMIN [Concomitant]
     Active Substance: METFORMIN HYDROCHLORIDE
     Indication: Blood glucose increased
     Dosage: 0.5 G, BID
     Dates: start: 2023

REACTIONS (26)
  - Arteriosclerosis coronary artery [Unknown]
  - Aortic arteriosclerosis [Unknown]
  - Hepatic cirrhosis [Unknown]
  - Nephrolithiasis [Unknown]
  - Electrocardiogram T wave inversion [Unknown]
  - Electrocardiogram ST segment depression [Unknown]
  - Aortic valve incompetence [Unknown]
  - Pulmonary fibrosis [Unknown]
  - Mitral valve incompetence [Unknown]
  - Tricuspid valve incompetence [Unknown]
  - Carotid arteriosclerosis [Unknown]
  - Urethritis [Unknown]
  - Arteriosclerosis [Unknown]
  - Peripheral vein thrombosis [Unknown]
  - Left atrial enlargement [Unknown]
  - Renal cyst [Unknown]
  - Pulmonary mass [Unknown]
  - Adrenal mass [Unknown]
  - Renal cyst [Unknown]
  - Adnexa uteri cyst [Unknown]
  - Atrioventricular block first degree [Unknown]
  - Decreased appetite [Recovering/Resolving]
  - Cardiac pacemaker insertion [Unknown]
  - Spinal operation [Unknown]
  - Nausea [Recovering/Resolving]
  - Hypoglycaemia [Recovering/Resolving]

NARRATIVE: CASE EVENT DATE: 20240101
